FAERS Safety Report 5206647-7 (Version None)
Quarter: 2007Q1

REPORT INFORMATION
  Report Type: 
  Country: None (occurrence: None)
  Receive Date: 20070109
  Receipt Date: 20061228
  Transmission Date: 20070707
  Serious: Yes (Death, Other)
  Sender: FDA-Public Use
  Company Number: 2006-03280

PATIENT
  Age: 64 Year
  Sex: Female

DRUGS (2)
  1. VELCADE [Suspect]
     Indication: MULTIPLE MYELOMA
     Dosage: 1.30 MG/M2, INTRAVENOUS
     Route: 042
     Dates: start: 20061208, end: 20061201
  2. DEXAMETHASONE TAB [Concomitant]

REACTIONS (6)
  - ARTERIAL THROMBOSIS LIMB [None]
  - BLOOD PRESSURE DECREASED [None]
  - CYANOSIS [None]
  - HYPOXIA [None]
  - MYOCARDIAL INFARCTION [None]
  - NECROSIS [None]
